FAERS Safety Report 4336786-4 (Version None)
Quarter: 2004Q2

REPORT INFORMATION
  Report Type: 
  Country: None (occurrence: None)
  Receive Date: 20040412
  Receipt Date: 20031126
  Transmission Date: 20050107
  Serious: Yes (Disabling, Other)
  Sender: FDA-Public Use
  Company Number: FR-BRISTOL-MYERS SQUIBB COMPANY-12445722

PATIENT
  Age: 49 Year
  Sex: Female
  Weight: 80 kg

DRUGS (4)
  1. KENACORT [Suspect]
     Indication: ASTHMA
     Route: 030
     Dates: start: 20011218, end: 20011218
  2. KENACORT [Suspect]
     Indication: RHINITIS SEASONAL
     Route: 030
     Dates: start: 20011218, end: 20011218
  3. KENACORT [Suspect]
     Indication: RHEUMATOID ARTHRITIS
     Route: 030
     Dates: start: 20011218, end: 20011218
  4. PRACTAZIN [Concomitant]
     Dates: start: 20000102

REACTIONS (5)
  - INJECTION SITE MASS [None]
  - INJECTION SITE PAIN [None]
  - INJECTION SITE REACTION [None]
  - MUSCLE ATROPHY [None]
  - MUSCULAR DYSTROPHY [None]
